FAERS Safety Report 12885206 (Version 5)
Quarter: 2016Q4

REPORT INFORMATION
  Report Type: Report from Study
  Country: IT (occurrence: IT)
  Receive Date: 20161026
  Receipt Date: 20161222
  Transmission Date: 20170207
  Serious: Yes (Life-Threatening, Hospitalization)
  Sender: FDA-Public Use
  Company Number: IT-ROCHE-1837612

PATIENT
  Age: 73 Year
  Sex: Male
  Weight: 62 kg

DRUGS (27)
  1. BACTRIM [Concomitant]
     Active Substance: SULFAMETHOXAZOLE\TRIMETHOPRIM
     Indication: INFECTION PROPHYLAXIS
     Route: 065
     Dates: start: 20160921
  2. CHLORPHENAMINE [Concomitant]
     Active Substance: CHLORPHENIRAMINE MALEATE
     Indication: PREMEDICATION
     Route: 065
     Dates: start: 20160920
  3. PREDNISONE. [Concomitant]
     Active Substance: PREDNISONE
     Route: 065
     Dates: start: 20160925, end: 20161003
  4. DOXORUBICIN [Suspect]
     Active Substance: DOXORUBICIN
     Indication: B-CELL LYMPHOMA
     Dosage: MOST RECENT DOSE (81 MG) ADMINISTERED ON 21/SEP/2016 AT 15:00, PRIOR TO THE EVENT?MOST RECENT DOSE (
     Route: 042
     Dates: start: 20160921
  5. VINCRISTINE [Suspect]
     Active Substance: VINCRISTINE
     Indication: B-CELL LYMPHOMA
     Dosage: CAP OF 2.0 MG?MOST RECENT DOSE (2 MG) ADMINISTERED ON 21/SEP/2016 AT 15:30, PRIOR TO THE EVENT?MOST
     Route: 042
     Dates: start: 20160921
  6. RITUXIMAB [Suspect]
     Active Substance: RITUXIMAB
     Indication: B-CELL LYMPHOMA
     Dosage: MOST RECENT DOSE (622.5 MG) ADMINISTERED ON 20/SEP/2016 AT 13:30, PRIOR TO THE EVENT?MOST RECENT DOS
     Route: 042
     Dates: start: 20160920
  7. CYCLOPHOSPHAMIDE. [Suspect]
     Active Substance: CYCLOPHOSPHAMIDE
     Indication: B-CELL LYMPHOMA
     Dosage: MOST RECENT DOSE (1215 MG) ADMINISTERED ON 21/SEP/2016 AT 16:00, PRIOR TO THE EVENT?MOST RECENT DOSE
     Route: 042
     Dates: start: 20160921
  8. FUROSEMIDE. [Concomitant]
     Active Substance: FUROSEMIDE
     Route: 065
     Dates: start: 20160919, end: 20160923
  9. MAGALDRATE [Concomitant]
     Active Substance: MAGALDRATE
     Indication: PROPHYLAXIS
     Route: 065
     Dates: start: 20161006
  10. VENETOCLAX [Suspect]
     Active Substance: VENETOCLAX
     Indication: B-CELL LYMPHOMA
     Dosage: MOST RECENT DOSE (800 MG) ADMINISTERED ON 30/SEP/2016, PRIOR TO THE EVENT?MOST RECENT DOSE (100 MG)
     Route: 048
     Dates: start: 20160924
  11. RASBURICASE [Concomitant]
     Active Substance: RASBURICASE
     Indication: PROPHYLAXIS
     Route: 065
     Dates: start: 20160919, end: 20160920
  12. ACYCLOVIR. [Concomitant]
     Active Substance: ACYCLOVIR
     Indication: PROPHYLAXIS
     Route: 065
     Dates: start: 20160922
  13. PREDNISONE. [Suspect]
     Active Substance: PREDNISONE
     Indication: B-CELL LYMPHOMA
     Dosage: ADMINISTERED DAILY ON DAYS 1-5 OF EACH 21-DAY CYCLE?MOST RECENT DOSE ADMINISTERED ON 24/SEP/2016, PR
     Route: 048
     Dates: start: 20160920
  14. RASBURICASE [Concomitant]
     Active Substance: RASBURICASE
     Indication: PROPHYLAXIS
     Route: 065
     Dates: start: 20160924, end: 20160924
  15. METHOTREXATE. [Concomitant]
     Active Substance: METHOTREXATE
     Indication: PROPHYLAXIS
     Route: 037
     Dates: start: 20160922, end: 20160922
  16. AMISULPRIDE [Concomitant]
     Active Substance: AMISULPRIDE
     Indication: DEPRESSION
     Route: 065
     Dates: start: 20160908
  17. FLUCONAZOLE. [Concomitant]
     Active Substance: FLUCONAZOLE
     Indication: INFECTION PROPHYLAXIS
     Route: 065
     Dates: end: 20160923
  18. OMEPRAZOLE. [Concomitant]
     Active Substance: OMEPRAZOLE
     Indication: PROPHYLAXIS
     Route: 065
     Dates: start: 20160830
  19. PEGFILGRASTIM [Concomitant]
     Active Substance: PEGFILGRASTIM
     Route: 065
     Dates: start: 20161013, end: 20161013
  20. PARACETAMOL [Concomitant]
     Active Substance: ACETAMINOPHEN
     Indication: PREMEDICATION
     Route: 065
     Dates: start: 20160920
  21. LEVOFLOXACIN. [Concomitant]
     Active Substance: LEVOFLOXACIN
     Indication: PROPHYLAXIS
     Route: 065
     Dates: start: 20160930, end: 20160930
  22. ONDANSETRON [Concomitant]
     Active Substance: ONDANSETRON
     Indication: NAUSEA
     Route: 065
     Dates: start: 20160920, end: 20160923
  23. PREDNISONE. [Concomitant]
     Active Substance: PREDNISONE
     Route: 065
     Dates: start: 20160902, end: 20160919
  24. ENOXAPARIN [Concomitant]
     Active Substance: ENOXAPARIN
     Indication: THROMBOSIS
     Route: 065
     Dates: start: 20160914
  25. ALLOPURINOLO [Concomitant]
     Active Substance: ALLOPURINOL
     Indication: PROPHYLAXIS
     Route: 065
     Dates: start: 20160921
  26. FILGRASTIM [Concomitant]
     Active Substance: FILGRASTIM
     Indication: PROPHYLAXIS
     Route: 065
     Dates: start: 20160924, end: 20161002
  27. LACTULOSE. [Concomitant]
     Active Substance: LACTULOSE
     Indication: SUPPORTIVE CARE
     Route: 065
     Dates: start: 20160918, end: 20160927

REACTIONS (2)
  - Febrile neutropenia [Recovered/Resolved]
  - Pseudomonal sepsis [Recovered/Resolved]

NARRATIVE: CASE EVENT DATE: 20160930
